FAERS Safety Report 23217934 (Version 1)
Quarter: 2023Q4

REPORT INFORMATION
  Report Type: Spontaneous
  Country: US (occurrence: US)
  Receive Date: 20231122
  Receipt Date: 20231122
  Transmission Date: 20240109
  Serious: Yes (Other)
  Sender: FDA-Public Use
  Company Number: US-009507513-2311USA006344

PATIENT
  Age: 19 Year
  Sex: Female

DRUGS (2)
  1. KEYTRUDA [Suspect]
     Active Substance: PEMBROLIZUMAB
     Indication: Adrenocortical carcinoma
     Dosage: 200 MILLIGRAM, Q3W
  2. DEXAMETHASONE [Concomitant]
     Active Substance: DEXAMETHASONE
     Dosage: MG AND 2 MG OF DEXAMETHASONE THE PREVIOUS EVENING

REACTIONS (3)
  - Primary adrenal insufficiency [Unknown]
  - Diarrhoea [Unknown]
  - Product use in unapproved indication [Unknown]
